FAERS Safety Report 15439341 (Version 2)
Quarter: 2018Q4

REPORT INFORMATION
  Report Type: Spontaneous
  Country: JP (occurrence: JP)
  Receive Date: 20180928
  Receipt Date: 20181101
  Transmission Date: 20190204
  Serious: Yes (Hospitalization)
  Sender: FDA-Public Use
  Company Number: JP-TEVA-2018-JP-956956

PATIENT
  Age: 40 Year
  Sex: Female

DRUGS (4)
  1. PREDNISOLONE. [Suspect]
     Active Substance: PREDNISOLONE
     Dosage: SOLUBLE PREDNISOLONE
     Route: 048
  2. PREGABALIN. [Suspect]
     Active Substance: PREGABALIN
     Indication: GENITAL PAIN
     Route: 065
  3. DISOPAIN [Suspect]
     Active Substance: MOFEZOLAC
     Indication: GENITAL PAIN
     Route: 065
  4. PREDNISOLONE. [Suspect]
     Active Substance: PREDNISOLONE
     Indication: SYSTEMIC LUPUS ERYTHEMATOSUS
     Route: 048

REACTIONS (10)
  - Neurogenic bladder [Recovered/Resolved]
  - Herpes zoster [Unknown]
  - Septic shock [Recovered/Resolved]
  - Dysuria [Unknown]
  - Viral myelitis [Unknown]
  - Nausea [Recovering/Resolving]
  - Pyuria [Unknown]
  - Pyelonephritis [Unknown]
  - Systemic inflammatory response syndrome [Unknown]
  - Urinary tract infection pseudomonal [Recovered/Resolved]

NARRATIVE: CASE EVENT DATE: 2013
